FAERS Safety Report 9412055 (Version 1)
Quarter: 2013Q2

REPORT INFORMATION
  Report Type: Spontaneous
  Country: US (occurrence: None)
  Receive Date: 20130410
  Receipt Date: 20130410
  Transmission Date: 20140414
  Serious: Yes (Hospitalization, Other)
  Sender: FDA-Public Use
  Company Number: VAL_02281_2013

PATIENT
  Age: 24 Year
  Sex: Female

DRUGS (7)
  1. METOPROLOL TARTRATE [Suspect]
     Indication: PRODUCT USED FOR UNKNOWN INDICATION
  2. ISOPROTERENOL [Suspect]
     Indication: VENTRICULAR TACHYCARDIA
     Dosage: TITRATED FROM 0.25 TO 1.0 MCG/MIN
  3. MAGNESIUM [Suspect]
     Indication: VENTRICULAR TACHYCARDIA
     Dosage: CONTINUOUS DRIP UP TO 2 G/HR
  4. CILOSTAZOL [Suspect]
     Indication: VENTRICULAR TACHYCARDIA
  5. AMIODARONE [Suspect]
     Indication: VENTRICULAR TACHYCARDIA
     Dosage: DF
  6. QUINAGLUTE [Suspect]
     Indication: PRODUCT USED FOR UNKNOWN INDICATION
  7. ESMOLOL [Suspect]
     Indication: PRODUCT USED FOR UNKNOWN INDICATION
     Route: 041

REACTIONS (3)
  - Ventricular tachycardia [None]
  - Exposure during pregnancy [None]
  - Torsade de pointes [None]
